FAERS Safety Report 9437241 (Version 1)
Quarter: 2013Q3

REPORT INFORMATION
  Report Type: Spontaneous
  Country: FR (occurrence: FR)
  Receive Date: 20130802
  Receipt Date: 20130802
  Transmission Date: 20140515
  Serious: Yes (Hospitalization)
  Sender: FDA-Public Use
  Company Number: PHHY2013FR082423

PATIENT
  Age: 50 Year
  Sex: Male

DRUGS (1)
  1. ZOMETA [Suspect]
     Indication: RENAL CANCER
     Dosage: UNK UKN, UNK
     Route: 042
     Dates: start: 201201, end: 201212

REACTIONS (1)
  - Osteonecrosis [Recovering/Resolving]
